FAERS Safety Report 6031343-6 (Version None)
Quarter: 2009Q1

REPORT INFORMATION
  Report Type: 
  Country: None (occurrence: None)
  Receive Date: 20090108
  Receipt Date: 20090106
  Transmission Date: 20090719
  Serious: Yes (Other)
  Sender: FDA-Public Use
  Company Number: US-ASTRAZENECA-2009UW00426

PATIENT
  Sex: Male

DRUGS (5)
  1. CRESTOR [Suspect]
     Route: 048
  2. VITAMIN-MINERAL COMPOUND TAB [Suspect]
     Dosage: SOFTGEL
     Dates: start: 20081212
  3. CENTRUM SILVER [Concomitant]
  4. ASCORBIC ACID [Concomitant]
  5. ASPIRIN [Concomitant]

REACTIONS (3)
  - GENITAL SWELLING [None]
  - LIP SWELLING [None]
  - PRURITUS [None]
